FAERS Safety Report 8901482 (Version 1)
Quarter: 2012Q4

REPORT INFORMATION
  Report Type: Report from Study
  Country: US (occurrence: US)
  Receive Date: 20121108
  Receipt Date: 20121108
  Transmission Date: 20130627
  Serious: Yes (Death, Hospitalization, Other)
  Sender: FDA-Public Use
  Company Number: US-ABBOTT-12P-163-1001784-00

PATIENT
  Age: 79 None
  Sex: Female

DRUGS (3)
  1. HUMIRA [Suspect]
     Indication: PSORIATIC ARTHROPATHY
     Route: 058
     Dates: start: 20041202, end: 20120727
  2. DIGOXIN [Concomitant]
     Indication: PRODUCT USED FOR UNKNOWN INDICATION
  3. CYMBALTA [Concomitant]
     Indication: PRODUCT USED FOR UNKNOWN INDICATION

REACTIONS (10)
  - Death [Fatal]
  - Femur fracture [Unknown]
  - Fracture reduction [Unknown]
  - Hip fracture [Unknown]
  - Fracture reduction [Unknown]
  - Hip fracture [Unknown]
  - Fracture reduction [Unknown]
  - Cardiac arrest [Unknown]
  - Knee arthroplasty [Unknown]
  - Dehydration [Unknown]
